FAERS Safety Report 7701521-6 (Version None)
Quarter: 2011Q3

REPORT INFORMATION
  Report Type: 
  Country: None (occurrence: None)
  Receive Date: 20110822
  Receipt Date: 20110818
  Transmission Date: 20111222
  Serious: Yes (Hospitalization, Other)
  Sender: FDA-Public Use
  Company Number: US-MERCK-1102USA02269

PATIENT
  Age: 52 Year
  Sex: Female
  Weight: 89 kg

DRUGS (42)
  1. FOSAMAX [Suspect]
     Indication: OSTEOPOROSIS
     Route: 048
     Dates: start: 19980101, end: 20100101
  2. CLINDAMYCIN [Concomitant]
     Route: 065
     Dates: start: 20090101
  3. CAFERGOT [Concomitant]
     Route: 048
     Dates: start: 20070101
  4. WIGRAINE (CAFFEINE (+) ERGOTAMINE TARTRATE) [Concomitant]
     Indication: HEADACHE
     Dosage: 2 AT ONSET
     Route: 065
  5. NASACORT [Concomitant]
     Route: 065
  6. SODIUM CHLORIDE [Concomitant]
     Route: 065
  7. CHOLECALCIFEROL [Concomitant]
     Dosage: AT 6PM
     Route: 065
  8. TAMOXIFEN CITRATE [Concomitant]
     Indication: BREAST CANCER
     Route: 065
     Dates: end: 20020921
  9. ALLEGRA [Concomitant]
     Indication: HYPERSENSITIVITY
     Route: 065
     Dates: start: 20090101
  10. ASCORBIC ACID AND ROSE HIPS [Concomitant]
     Route: 065
  11. PAROXETINE [Concomitant]
     Route: 048
  12. MOBIC [Concomitant]
     Route: 065
     Dates: end: 20050601
  13. ACIPHEX [Concomitant]
     Route: 065
     Dates: start: 20010101, end: 20030101
  14. RECLAST [Concomitant]
     Indication: OSTEOPOROSIS
     Dosage: 1
     Route: 041
  15. FEMARA [Concomitant]
     Route: 065
     Dates: start: 20070101, end: 20081001
  16. ASCORBIC ACID [Concomitant]
     Route: 065
  17. [THERAPY UNSPECIFIED] [Concomitant]
     Dosage: NOVODEX
     Route: 065
  18. OMEGA-3 MARINE TRIGLYCERIDES [Concomitant]
     Route: 065
  19. FOSAMAX [Suspect]
     Route: 048
  20. OMEPRAZOLE [Concomitant]
     Route: 065
     Dates: start: 20040101
  21. AZITHROMYCIN [Concomitant]
     Dosage: FOR 4 DAYS
     Route: 048
  22. ROZEREM [Concomitant]
     Dosage: PRN
     Route: 065
  23. IBUPROFEN [Concomitant]
     Route: 065
  24. DESYREL [Concomitant]
     Route: 048
  25. VICODIN [Concomitant]
     Route: 065
     Dates: start: 20070101
  26. VITAMINS (UNSPECIFIED) [Concomitant]
     Route: 048
  27. VITAMIN D (UNSPECIFIED) [Concomitant]
     Route: 065
  28. AMOXICILLIN [Concomitant]
     Route: 065
     Dates: start: 20040101
  29. FOSAMAX [Suspect]
     Indication: OSTEOPENIA
     Route: 048
     Dates: start: 19980101, end: 20100101
  30. SOLODYN [Concomitant]
     Route: 065
     Dates: start: 20090101
  31. CALCIUM (UNSPECIFIED) AND VITAMIN D (UNSPECIFIED) [Concomitant]
     Route: 065
  32. MINERALS (UNSPECIFIED) AND VITAMINS (UNSPECIFIED) [Concomitant]
     Route: 065
  33. ERGOCALCIFEROL [Concomitant]
     Route: 048
  34. LIPITOR [Concomitant]
     Route: 048
  35. PAXIL [Concomitant]
     Dosage: 20
     Route: 065
  36. [THERAPY UNSPECIFIED] [Concomitant]
     Dosage: CALCIUM W/ VITAMIN E
     Route: 065
  37. VITAMIN E [Concomitant]
     Route: 065
  38. ATIVAN [Concomitant]
     Route: 065
  39. LEVAQUIN [Concomitant]
     Route: 065
  40. ASPIRIN [Concomitant]
     Route: 065
  41. TYLENOL-500 [Concomitant]
     Route: 065
  42. PRILOSEC [Concomitant]
     Route: 048

REACTIONS (54)
  - INCISIONAL HERNIA [None]
  - HYPOTHYROIDISM [None]
  - ENDODONTIC PROCEDURE [None]
  - COLITIS [None]
  - BRONCHITIS [None]
  - BONE METABOLISM DISORDER [None]
  - SALPINGITIS [None]
  - OVARIAN CYST [None]
  - HAEMORRHOIDS [None]
  - EXOSTOSIS [None]
  - BREAST DISORDER [None]
  - RENAL DISORDER [None]
  - LIGAMENT SPRAIN [None]
  - TENOSYNOVITIS [None]
  - OESOPHAGITIS [None]
  - MAMMOGRAM ABNORMAL [None]
  - STRESS FRACTURE [None]
  - TIBIA FRACTURE [None]
  - GASTROOESOPHAGEAL REFLUX DISEASE [None]
  - VITAMIN D DEFICIENCY [None]
  - PAIN IN EXTREMITY [None]
  - CHOLECYSTITIS CHRONIC [None]
  - CHOLELITHIASIS [None]
  - FEMUR FRACTURE [None]
  - TENDONITIS [None]
  - CLUSTER HEADACHE [None]
  - VOMITING [None]
  - GASTRITIS [None]
  - PROCEDURAL VOMITING [None]
  - ORAL DISORDER [None]
  - NOCTURIA [None]
  - NAUSEA [None]
  - HAEMORRHAGIC ANAEMIA [None]
  - MUSCULOSKELETAL CHEST PAIN [None]
  - NEPHROLITHIASIS [None]
  - DIVERTICULUM [None]
  - INSOMNIA [None]
  - WEIGHT DECREASED [None]
  - RECTAL POLYP [None]
  - OTITIS MEDIA [None]
  - PROCEDURAL NAUSEA [None]
  - BURSITIS [None]
  - HIP FRACTURE [None]
  - IMPAIRED HEALING [None]
  - HYPERTENSION [None]
  - GINGIVAL DISORDER [None]
  - EMBOLISM VENOUS [None]
  - RENAL CYST [None]
  - OSTEOARTHRITIS [None]
  - HYPERCHOLESTEROLAEMIA [None]
  - HERPES ZOSTER [None]
  - RHINITIS ALLERGIC [None]
  - GASTRIC POLYPS [None]
  - FALL [None]
